FAERS Safety Report 10435597 (Version 2)
Quarter: 2014Q4

REPORT INFORMATION
  Report Type: Spontaneous
  Country: US (occurrence: US)
  Receive Date: 20140908
  Receipt Date: 20141021
  Transmission Date: 20150528
  Serious: No
  Sender: FDA-Public Use
  Company Number: US-009507513-1409USA002340

PATIENT
  Age: 11 Year
  Sex: Male
  Weight: 31.29 kg

DRUGS (4)
  1. ASMANEX [Suspect]
     Active Substance: MOMETASONE FUROATE
     Indication: HYPERSENSITIVITY
     Dosage: ONE PUFF AT NIGHT / 1 INHALATION EVERY (Q) DAY
     Route: 055
     Dates: start: 201312, end: 20140926
  2. ASMANEX [Suspect]
     Active Substance: MOMETASONE FUROATE
     Indication: ASTHMA
     Dosage: STRENGTH: 110 MICROGRAM /1 INHALATION EVERY (Q) DAY
     Route: 055
     Dates: start: 20140926
  3. PATANASE [Concomitant]
     Active Substance: OLOPATADINE HYDROCHLORIDE
     Dosage: UNK
  4. VENTOLIN HFA [Concomitant]
     Active Substance: ALBUTEROL SULFATE
     Indication: ASTHMA
     Dosage: UNK, PRN
     Route: 055
     Dates: start: 201309

REACTIONS (6)
  - Growth retardation [Unknown]
  - Oropharyngeal discomfort [Recovered/Resolved]
  - Cough [Unknown]
  - Drug dose omission [Unknown]
  - Hot flush [Recovered/Resolved]
  - Product container issue [Unknown]

NARRATIVE: CASE EVENT DATE: 20140925
